FAERS Safety Report 5956980-6 (Version None)
Quarter: 2008Q4

REPORT INFORMATION
  Report Type: 
  Country: None (occurrence: None)
  Receive Date: 20081031
  Receipt Date: 20080815
  Transmission Date: 20090506
  Serious: No
  Sender: FDA-Public Use
  Company Number: 2008PV036489

PATIENT
  Age: 34 Year
  Sex: Female
  Weight: 111 kg

DRUGS (2)
  1. SYMLINPEN (PRAMLINTIDE ACETATE) PEN-INJECTOR (1.0 MG/ML) [Suspect]
     Indication: TYPE 1 DIABETES MELLITUS
     Dosage: 60 MCG;TID; SC
     Route: 058
     Dates: start: 20080101
  2. INSULIN [Concomitant]

REACTIONS (1)
  - DRUG INEFFECTIVE [None]
